FAERS Safety Report 8715079 (Version 2)
Quarter: 2013Q3

REPORT INFORMATION
  Report Type: Spontaneous
  Country: US (occurrence: US)
  Receive Date: 20120809
  Receipt Date: 20130830
  Transmission Date: 20140515
  Serious: Yes (Hospitalization)
  Sender: FDA-Public Use
  Company Number: US-ASTRAZENECA-2012SE52563

PATIENT
  Age: 71 Year
  Sex: Male

DRUGS (11)
  1. PRILOSEC OTC [Suspect]
     Indication: DYSPEPSIA
     Dosage: DAILY
     Route: 048
  2. CRESTOR [Suspect]
     Indication: BLOOD CHOLESTEROL
     Route: 048
  3. CRESTOR [Suspect]
     Indication: BLOOD CHOLESTEROL
     Route: 048
  4. CHLORTHIADONE [Concomitant]
     Route: 048
  5. GLUCOSAMIDE [Concomitant]
     Dosage: DAILY
     Route: 048
  6. GLIMEPIRIDE [Concomitant]
     Route: 048
  7. METFORMIN [Concomitant]
     Route: 048
  8. ISOSORB MONO ER [Concomitant]
     Route: 048
  9. ENALAPRIL [Concomitant]
  10. METOPROLOL TARTA [Concomitant]
     Route: 048
  11. BABY ASPIRIN [Concomitant]
     Indication: ANTICOAGULANT THERAPY
     Dosage: DAILY
     Route: 048

REACTIONS (12)
  - Fall [Unknown]
  - Gastric disorder [Unknown]
  - Malaise [Unknown]
  - Polyp [Unknown]
  - Adverse event [Unknown]
  - Pain [Not Recovered/Not Resolved]
  - Back pain [Not Recovered/Not Resolved]
  - Hypertension [Unknown]
  - Arthropathy [Unknown]
  - Blood cholesterol increased [Unknown]
  - Diabetes mellitus [Not Recovered/Not Resolved]
  - Intentional drug misuse [Unknown]
